FAERS Safety Report 5749240-X (Version None)
Quarter: 2008Q2

REPORT INFORMATION
  Report Type: 
  Country: None (occurrence: None)
  Receive Date: 20080527
  Receipt Date: 20080521
  Transmission Date: 20081010
  Serious: Yes (Other)
  Sender: FDA-Public Use
  Company Number: FR-WYE-G01565708

PATIENT
  Age: 60 Year
  Sex: Female

DRUGS (4)
  1. EFFEXOR [Suspect]
     Route: 048
     Dates: start: 20080301
  2. NEXIUM [Concomitant]
     Dosage: UNKNOWN
  3. OXAZEPAM [Concomitant]
  4. PLAVIX [Concomitant]
     Dosage: UNKNOWN

REACTIONS (1)
  - ANGIOEDEMA [None]
